FAERS Safety Report 19768456 (Version 1)
Quarter: 2021Q3

REPORT INFORMATION
  Report Type: Spontaneous
  Country: US (occurrence: US)
  Receive Date: 20210830
  Receipt Date: 20210830
  Transmission Date: 20211014
  Serious: No
  Sender: FDA-Public Use
  Company Number: US-ABBVIE-21K-163-3953383-00

PATIENT
  Sex: Female

DRUGS (3)
  1. ELAGOLIX/ESTRADIOL/NORETHINDRONE ACETATE [Suspect]
     Active Substance: ELAGOLIX SODIUM\ESTRADIOL\NORETHINDRONE
     Indication: UTERINE LEIOMYOMA
     Dosage: AM
     Route: 048
     Dates: start: 202103, end: 20210605
  2. ELAGOLIX [Suspect]
     Active Substance: ELAGOLIX
     Indication: UTERINE LEIOMYOMA
     Dosage: PM
     Route: 048
     Dates: start: 202103, end: 20210605
  3. COVID?19 VACCINE [Concomitant]
     Indication: COVID-19 IMMUNISATION
     Route: 030

REACTIONS (1)
  - Migraine [Recovered/Resolved]

NARRATIVE: CASE EVENT DATE: 202104
